FAERS Safety Report 5731599-0 (Version None)
Quarter: 2008Q2

REPORT INFORMATION
  Report Type: 
  Country: None (occurrence: None)
  Receive Date: 20080506
  Receipt Date: 20080506
  Transmission Date: 20081010
  Serious: Yes (Hospitalization)
  Sender: FDA-Public Use
  Company Number: None

PATIENT
  Age: 44 Year
  Sex: Female
  Weight: 92 kg

DRUGS (1)
  1. CEFOXITIN [Suspect]
     Indication: COLON OPERATION
     Dosage: 1 G Q8H IV
     Route: 042
     Dates: start: 20080222, end: 20080225

REACTIONS (1)
  - CLOSTRIDIUM DIFFICILE COLITIS [None]
